FAERS Safety Report 11024769 (Version 1)
Quarter: 2015Q2

REPORT INFORMATION
  Report Type: Spontaneous
  Country: US (occurrence: None)
  Receive Date: 20150413
  Receipt Date: 20150413
  Transmission Date: 20150821
  Serious: Yes (Other)
  Sender: FDA-Public Use
  Company Number: None

PATIENT
  Age: 55 Year
  Sex: Female
  Weight: 72.58 kg

DRUGS (6)
  1. LEVOTHYROXINE [Concomitant]
     Active Substance: LEVOTHYROXINE
  2. ATORVASTATIN [Suspect]
     Active Substance: ATORVASTATIN
     Indication: CORONARY ARTERY OCCLUSION
     Dosage: 1 PILL
     Route: 048
     Dates: start: 20061008, end: 20070214
  3. ATENOLOL. [Concomitant]
     Active Substance: ATENOLOL
  4. ASA [Concomitant]
     Active Substance: ASPIRIN
  5. ATORVASTATIN [Suspect]
     Active Substance: ATORVASTATIN
     Indication: MYOCARDIAL INFARCTION
     Dosage: 1 PILL
     Route: 048
     Dates: start: 20061008, end: 20070214
  6. PLAVIX [Concomitant]
     Active Substance: CLOPIDOGREL BISULFATE

REACTIONS (4)
  - Drug intolerance [None]
  - Muscular weakness [None]
  - Myopathy [None]
  - Pain in extremity [None]

NARRATIVE: CASE EVENT DATE: 20070214
